FAERS Safety Report 8066469-9 (Version None)
Quarter: 2012Q1

REPORT INFORMATION
  Report Type: 
  Country: None (occurrence: None)
  Receive Date: 20120124
  Receipt Date: 20120116
  Transmission Date: 20120608
  Serious: Yes (Hospitalization)
  Sender: FDA-Public Use
  Company Number: US-BAYER-2011-036271

PATIENT
  Age: 20 Year
  Sex: Female
  Weight: 58.957 kg

DRUGS (6)
  1. YAZ [Suspect]
     Indication: MENSTRUAL CYCLE MANAGEMENT
  2. YASMIN [Suspect]
     Indication: CONTRACEPTION
     Dosage: UNK
     Dates: start: 20060401, end: 20070101
  3. YASMIN [Suspect]
     Indication: MENSTRUAL CYCLE MANAGEMENT
  4. ASCORBIC ACID [Concomitant]
     Indication: VITAMIN SUPPLEMENTATION
     Dosage: UNK
     Route: 048
     Dates: start: 20000101
  5. ADACEL [Concomitant]
     Indication: IMMUNISATION
     Dosage: UNK
     Route: 030
     Dates: start: 20070410
  6. YAZ [Suspect]
     Indication: CONTRACEPTION
     Dosage: UNK
     Dates: start: 20070101, end: 20070427

REACTIONS (8)
  - SUPERIOR SAGITTAL SINUS THROMBOSIS [None]
  - EMOTIONAL DISTRESS [None]
  - VOMITING [None]
  - NAUSEA [None]
  - INTRACRANIAL VENOUS SINUS THROMBOSIS [None]
  - TRANSVERSE SINUS THROMBOSIS [None]
  - JUGULAR VEIN THROMBOSIS [None]
  - HEADACHE [None]
